FAERS Safety Report 7400159-8 (Version None)
Quarter: 2011Q2

REPORT INFORMATION
  Report Type: 
  Country: None (occurrence: None)
  Receive Date: 20110405
  Receipt Date: 20110405
  Transmission Date: 20111010
  Serious: Yes (Other)
  Sender: FDA-Public Use
  Company Number: None

PATIENT
  Age: 13 Day
  Sex: Female
  Weight: 2.715 kg

DRUGS (1)
  1. GANCICLOVIR 50MG/ML GENENTECH [Suspect]
     Indication: CONGENITAL CYTOMEGALOVIRUS INFECTION
     Dosage: 16.4MG Q12 HOURS IV
     Route: 042
     Dates: start: 20110317, end: 20110328

REACTIONS (5)
  - JAUNDICE [None]
  - ALANINE AMINOTRANSFERASE INCREASED [None]
  - HEPATOMEGALY [None]
  - BLOOD ALKALINE PHOSPHATASE INCREASED [None]
  - ASPARTATE AMINOTRANSFERASE INCREASED [None]
